FAERS Safety Report 5748680-2 (Version None)
Quarter: 2008Q2

REPORT INFORMATION
  Report Type: 
  Country: None (occurrence: None)
  Receive Date: 20080521
  Receipt Date: 20080506
  Transmission Date: 20081010
  Serious: Yes (Death)
  Sender: FDA-Public Use
  Company Number: B0520431A

PATIENT
  Age: 45 Year
  Sex: Male

DRUGS (5)
  1. RANITIDINE HYDROCHLORIDE [Suspect]
  2. INTERFERON BETA-1B (FORMULATION UNKNOWN) (INTERFERON BETA-1B) [Suspect]
     Indication: MULTIPLE SCLEROSIS
  3. PREDNISONE [Suspect]
  4. FUROSEMIDE [Suspect]
  5. PHENYTOIN [Suspect]

REACTIONS (7)
  - COUGH [None]
  - LUNG NEOPLASM MALIGNANT [None]
  - OEDEMA PERIPHERAL [None]
  - PNEUMONIA [None]
  - PULMONARY CONGESTION [None]
  - PULMONARY THROMBOSIS [None]
  - PYREXIA [None]
